FAERS Safety Report 6917744-X (Version None)
Quarter: 2010Q3

REPORT INFORMATION
  Report Type: 
  Country: None (occurrence: None)
  Receive Date: 20100806
  Receipt Date: 20100730
  Transmission Date: 20110219
  Serious: Yes (Other)
  Sender: FDA-Public Use
  Company Number: PHO-2008-064

PATIENT
  Age: 60 Year
  Sex: Male

DRUGS (1)
  1. PHOTOFRIN [Suspect]
     Indication: OESOPHAGEAL CARCINOMA RECURRENT
     Dosage: 2 MG/M2 IV
     Route: 042
     Dates: start: 20060101

REACTIONS (5)
  - GASTROINTESTINAL NECROSIS [None]
  - OESOPHAGEAL STENOSIS [None]
  - OESOPHAGITIS ULCERATIVE [None]
  - PNEUMONIA ASPIRATION [None]
  - TRACHEO-OESOPHAGEAL FISTULA [None]
